FAERS Safety Report 7120262-X (Version None)
Quarter: 2010Q4

REPORT INFORMATION
  Report Type: 
  Country: None (occurrence: None)
  Receive Date: 20101123
  Receipt Date: 20101110
  Transmission Date: 20110411
  Serious: Yes (Hospitalization)
  Sender: FDA-Public Use
  Company Number: GB-GENENTECH-310024

PATIENT
  Sex: Female

DRUGS (5)
  1. RITUXIMAB [Suspect]
     Indication: MANTLE CELL LYMPHOMA
     Dosage: 600 MG, QAM
     Route: 042
     Dates: start: 20101012, end: 20101012
  2. FLUDARABINE [Suspect]
     Indication: MANTLE CELL LYMPHOMA
     Dosage: 30 MG, QAM
     Route: 048
     Dates: start: 20101012, end: 20101014
  3. CYCLOPHOSPHAMIDE [Suspect]
     Indication: MANTLE CELL LYMPHOMA
     Dosage: 400 MG, QAM
     Route: 048
     Dates: start: 20101012, end: 20101014
  4. COTRIM [Concomitant]
     Indication: PRODUCT USED FOR UNKNOWN INDICATION
     Dosage: 480 MG, 3/WEEK
     Route: 048
     Dates: start: 20100914
  5. ACYCLOVIR [Concomitant]
     Indication: ANTIFUNGAL TREATMENT
     Dosage: 200 MG, TID
     Route: 048
     Dates: start: 20100914

REACTIONS (5)
  - FATIGUE [None]
  - HYPERCALCAEMIA [None]
  - NAUSEA [None]
  - SPLENIC INFARCTION [None]
  - VOMITING [None]
